FAERS Safety Report 6526526-2 (Version None)
Quarter: 2010Q1

REPORT INFORMATION
  Report Type: 
  Country: None (occurrence: None)
  Receive Date: 20100105
  Receipt Date: 20091230
  Transmission Date: 20100710
  Serious: Yes (Hospitalization)
  Sender: FDA-Public Use
  Company Number: US-BRISTOL-MYERS SQUIBB COMPANY-14918411

PATIENT
  Age: 51 Year
  Sex: Female
  Weight: 102 kg

DRUGS (4)
  1. CISPLATIN [Suspect]
     Indication: OESOPHAGEAL CARCINOMA
     Dosage: LAST ADMINISTRATION DATE 21DEC09
     Dates: start: 20091116
  2. TAXOL [Suspect]
     Indication: OESOPHAGEAL CARCINOMA
     Dosage: LAST ADMINISTRATION DATE 21DEC09
     Dates: start: 20091116
  3. RADIATION THERAPY [Suspect]
     Indication: OESOPHAGEAL CARCINOMA
     Dosage: DATE OF LAST TREATMENT 23DEC09 NO. OF FRACTIONS 21 NO. OF ELASPSED DAYS 44 1DF=3780 CGY
     Dates: start: 20091116
  4. MS CONTIN [Suspect]
     Dates: start: 20091221

REACTIONS (1)
  - CONFUSIONAL STATE [None]
